FAERS Safety Report 16693975 (Version 1)
Quarter: 2019Q3

REPORT INFORMATION
  Report Type: Spontaneous
  Country: US (occurrence: US)
  Receive Date: 20190812
  Receipt Date: 20190812
  Transmission Date: 20191004
  Serious: No
  Sender: FDA-Public Use
  Company Number: US-SA-2019SA218458

PATIENT
  Age: 58 Year
  Sex: Female

DRUGS (5)
  1. MULTI VIT [Concomitant]
     Active Substance: VITAMINS
  2. ADVIL COLD [Concomitant]
  3. VITAMIN C [Concomitant]
     Active Substance: ASCORBIC ACID
  4. DUPIXENT [Suspect]
     Active Substance: DUPILUMAB
     Indication: DERMATITIS ATOPIC
     Dosage: 300 MG, QOW
     Dates: start: 20180925
  5. OSCAL [CALCIUM CARBONATE] [Concomitant]

REACTIONS (1)
  - Dermatitis atopic [Not Recovered/Not Resolved]
